FAERS Safety Report 17679097 (Version 3)
Quarter: 2021Q1

REPORT INFORMATION
  Report Type: Spontaneous
  Country: US (occurrence: US)
  Receive Date: 20200417
  Receipt Date: 20210126
  Transmission Date: 20210419
  Serious: Yes (Death, Hospitalization, Other)
  Sender: FDA-Public Use
  Company Number: US-ASTRAZENECA-2020SE51320

PATIENT
  Age: 26113 Day
  Sex: Male

DRUGS (31)
  1. NEXIUM [Suspect]
     Active Substance: ESOMEPRAZOLE MAGNESIUM
     Indication: GASTROOESOPHAGEAL REFLUX DISEASE
     Dosage: 40.0MG UNKNOWN
     Route: 048
     Dates: start: 200702
  2. PROTONIX [Suspect]
     Active Substance: PANTOPRAZOLE SODIUM
     Indication: GASTROOESOPHAGEAL REFLUX DISEASE
     Dosage: GENERIC40.0MG UNKNOWN
     Route: 065
     Dates: start: 201403, end: 201708
  3. LOSARTAN. [Concomitant]
     Active Substance: LOSARTAN
     Indication: BLOOD PRESSURE ABNORMAL
     Dates: start: 201502
  4. CLOPIDOGREL [Concomitant]
     Active Substance: CLOPIDOGREL BISULFATE
     Indication: ANTICOAGULANT THERAPY
     Dates: start: 201411, end: 201503
  5. PROTONIX [Suspect]
     Active Substance: PANTOPRAZOLE SODIUM
     Indication: GASTROOESOPHAGEAL REFLUX DISEASE
     Dosage: 40.0MG UNKNOWN
     Route: 065
     Dates: start: 201404
  6. SIMVASTATIN. [Concomitant]
     Active Substance: SIMVASTATIN
     Indication: BLOOD CHOLESTEROL ABNORMAL
     Dates: start: 201106
  7. CRESTOR [Concomitant]
     Active Substance: ROSUVASTATIN CALCIUM
     Indication: BLOOD CHOLESTEROL ABNORMAL
     Dates: start: 201501
  8. PREDNISOLONE. [Concomitant]
     Active Substance: PREDNISOLONE
  9. ATACAND [Concomitant]
     Active Substance: CANDESARTAN CILEXETIL
  10. PROTONIX [Suspect]
     Active Substance: PANTOPRAZOLE SODIUM
     Indication: GASTROOESOPHAGEAL REFLUX DISEASE
     Route: 065
     Dates: start: 200301, end: 201403
  11. COLCHICINE. [Concomitant]
     Active Substance: COLCHICINE
  12. ATORVASTATIN [Concomitant]
     Active Substance: ATORVASTATIN
     Indication: BLOOD CHOLESTEROL ABNORMAL
     Dates: start: 201402, end: 201409
  13. XALATAN [Concomitant]
     Active Substance: LATANOPROST
  14. ZYMAR [Concomitant]
     Active Substance: GATIFLOXACIN
  15. BETIMOL [Concomitant]
     Active Substance: TIMOLOL
  16. INDOMETHACIN. [Concomitant]
     Active Substance: INDOMETHACIN
  17. NEXIUM [Suspect]
     Active Substance: ESOMEPRAZOLE MAGNESIUM
     Indication: GASTROOESOPHAGEAL REFLUX DISEASE
     Route: 048
     Dates: start: 200301, end: 201403
  18. RANEXA [Concomitant]
     Active Substance: RANOLAZINE
  19. PREVACID [Suspect]
     Active Substance: LANSOPRAZOLE
     Indication: GASTROOESOPHAGEAL REFLUX DISEASE
     Route: 065
     Dates: start: 200301, end: 201403
  20. LISINOPRIL. [Concomitant]
     Active Substance: LISINOPRIL
     Indication: BLOOD PRESSURE ABNORMAL
     Dates: start: 2010
  21. ALLOPURINOL. [Concomitant]
     Active Substance: ALLOPURINOL
     Indication: GOUT
     Dates: start: 2011, end: 2015
  22. ACULAR [Concomitant]
     Active Substance: KETOROLAC TROMETHAMINE
  23. VYTORIN [Concomitant]
     Active Substance: EZETIMIBE\SIMVASTATIN
  24. ZETIA [Concomitant]
     Active Substance: EZETIMIBE
  25. TRAVATAN [Concomitant]
     Active Substance: TRAVOPROST
  26. NITROGLYCERIN. [Concomitant]
     Active Substance: NITROGLYCERIN
  27. TIMOLOL. [Concomitant]
     Active Substance: TIMOLOL
  28. PREVACID [Suspect]
     Active Substance: LANSOPRAZOLE
     Indication: GASTROOESOPHAGEAL REFLUX DISEASE
     Dosage: 30.0MG UNKNOWN
     Route: 065
     Dates: start: 2003, end: 2009
  29. HYDROCHLOROTHIAZIDE. [Concomitant]
     Active Substance: HYDROCHLOROTHIAZIDE
     Indication: BLOOD PRESSURE ABNORMAL
     Dates: start: 2010, end: 2011
  30. MELOXICAM. [Concomitant]
     Active Substance: MELOXICAM
     Indication: PAIN
     Dates: start: 201305
  31. CIPROFLOXACIN. [Concomitant]
     Active Substance: CIPROFLOXACIN
     Indication: INFECTION
     Dates: start: 201404

REACTIONS (6)
  - Tubulointerstitial nephritis [Unknown]
  - Hyperparathyroidism secondary [Unknown]
  - Acute kidney injury [Unknown]
  - Death [Fatal]
  - Chronic kidney disease [Unknown]
  - Renal failure [Unknown]

NARRATIVE: CASE EVENT DATE: 20140321
